FAERS Safety Report 25084925 (Version 1)
Quarter: 2025Q1

REPORT INFORMATION
  Report Type: Spontaneous
  Country: ES (occurrence: ES)
  Receive Date: 20250317
  Receipt Date: 20250317
  Transmission Date: 20250409
  Serious: Yes (Life-Threatening, Hospitalization)
  Sender: TEVA
  Company Number: None

PATIENT
  Age: 56 Year
  Sex: Female

DRUGS (6)
  1. LEVOTHYROXINE [Suspect]
     Active Substance: LEVOTHYROXINE
     Indication: Hypothyroidism
     Dosage: LEVOTHYROXINE SODIUM (1842SO)
     Route: 048
     Dates: start: 20241025, end: 20241101
  2. SOMATOSTATIN [Suspect]
     Active Substance: SOMATOSTATIN
     Indication: Fistula
     Dosage: SOMATOSTATINA (1765A)
     Route: 042
     Dates: start: 20241107, end: 20241211
  3. PIPERACILLIN AND TAZOBACTAM [Suspect]
     Active Substance: PIPERACILLIN SODIUM\TAZOBACTAM SODIUM
     Indication: Gastrointestinal infection
     Route: 042
     Dates: start: 20241025, end: 20241209
  4. METAMIZOL [Suspect]
     Active Substance: METAMIZOLE SODIUM
     Indication: Pain
     Dosage: METAMIZOL (111A)
     Route: 042
     Dates: start: 20241107, end: 20241211
  5. ANIDULAFUNGIN [Suspect]
     Active Substance: ANIDULAFUNGIN
     Indication: Gastrointestinal infection
     Dosage: ANIDULAFUNGIN (8100A)
     Route: 042
     Dates: start: 20241107, end: 20241210
  6. DEXKETOPROFEN [Suspect]
     Active Substance: DEXKETOPROFEN
     Indication: Pain
     Dosage: DEXKETOPROFENO (7312A)
     Route: 042
     Dates: start: 20241025, end: 20241211

REACTIONS (1)
  - Drug reaction with eosinophilia and systemic symptoms [Recovered/Resolved]

NARRATIVE: CASE EVENT DATE: 20241208
